FAERS Safety Report 4454569-1 (Version None)
Quarter: 2004Q3

REPORT INFORMATION
  Report Type: 
  Country: None (occurrence: None)
  Receive Date: 20040921
  Receipt Date: 20040914
  Transmission Date: 20050211
  Serious: Yes (Other)
  Sender: FDA-Public Use
  Company Number: US-BRISTOL-MYERS SQUIBB COMPANY-12703807

PATIENT
  Age: 37 Year
  Sex: Male
  Weight: 78 kg

DRUGS (4)
  1. SUSTIVA [Suspect]
     Indication: HIV INFECTION
     Dosage: THERAPY INTERRUPTED ON 15-SEP-2003
     Route: 048
     Dates: start: 20030609
  2. TRIZIVIR [Suspect]
     Indication: HIV INFECTION
     Dosage: THERAPY INTERRUPTED ON 15-SEP-2003
     Route: 048
     Dates: start: 20021003
  3. BECONASE [Concomitant]
  4. VICODIN [Concomitant]

REACTIONS (2)
  - LIPASE INCREASED [None]
  - TOOTHACHE [None]
